FAERS Safety Report 8674392 (Version 3)
Quarter: 2013Q2

REPORT INFORMATION
  Report Type: Spontaneous
  Country: US (occurrence: US)
  Receive Date: 20120720
  Receipt Date: 20130508
  Transmission Date: 20140414
  Serious: No
  Sender: FDA-Public Use
  Company Number: US-BIOGENIDEC-2012BI025781

PATIENT
  Age: 52 Year
  Sex: Female

DRUGS (4)
  1. TYSABRI [Suspect]
     Indication: MULTIPLE SCLEROSIS
     Route: 042
     Dates: start: 20120417, end: 20120814
  2. AVONEX [Concomitant]
     Indication: MULTIPLE SCLEROSIS
     Route: 030
  3. MEDICATION (NOS) [Concomitant]
     Indication: FATIGUE
  4. GOODYS [Concomitant]
     Indication: HEADACHE

REACTIONS (8)
  - Hair texture abnormal [Not Recovered/Not Resolved]
  - Dry skin [Recovered/Resolved]
  - Muscle spasms [Recovered/Resolved]
  - General symptom [Recovered/Resolved]
  - Drug specific antibody present [Recovered/Resolved]
  - Pruritus [Recovered/Resolved]
  - Alopecia [Recovered/Resolved]
  - Headache [Recovered/Resolved]
